FAERS Safety Report 17574546 (Version 1)
Quarter: 2020Q1

REPORT INFORMATION
  Report Type: Report from Study
  Country: US (occurrence: US)
  Receive Date: 20200324
  Receipt Date: 20200324
  Transmission Date: 20200409
  Serious: Yes (Hospitalization, Other)
  Sender: FDA-Public Use
  Company Number: US-AUROBINDO-AUR-APL-2020-014359

PATIENT
  Sex: Male

DRUGS (3)
  1. DEXAMETHASONE. [Suspect]
     Active Substance: DEXAMETHASONE
     Indication: PRODUCT USED FOR UNKNOWN INDICATION
     Dosage: UNK
     Route: 065
     Dates: start: 20091005, end: 201003
  2. ALBENDAZOLE. [Concomitant]
     Active Substance: ALBENDAZOLE
     Indication: NEUROCYSTICERCOSIS
     Dosage: UNK
     Route: 065
  3. METHOTREXATE. [Concomitant]
     Active Substance: METHOTREXATE
     Indication: PRODUCT USED FOR UNKNOWN INDICATION
     Dosage: UNK
     Route: 065
     Dates: start: 20091005, end: 201308

REACTIONS (5)
  - Weight increased [Recovered/Resolved]
  - Osteonecrosis [Recovered/Resolved]
  - Oedema peripheral [Recovered/Resolved]
  - Pulmonary embolism [Recovered/Resolved]
  - Diabetes mellitus [Recovered/Resolved]
